FAERS Safety Report 21213015 (Version 1)
Quarter: 2022Q3

REPORT INFORMATION
  Report Type: Other
  Country: None (occurrence: JP)
  Receive Date: 20220815
  Receipt Date: 20220815
  Transmission Date: 20221027
  Serious: Yes (Hospitalization, Other)
  Sender: FDA-Public Use
  Company Number: JP-B.Braun Medical Inc.-2131897

PATIENT
  Age: 84 Year
  Sex: Male
  Weight: 89 kg

DRUGS (9)
  1. CEFTRIAXONE SODIUM [Suspect]
     Active Substance: CEFTRIAXONE SODIUM
     Indication: Infection
     Route: 042
  2. NIFEDIPINE [Concomitant]
     Active Substance: NIFEDIPINE
  3. FUROSEMIDE [Concomitant]
     Active Substance: FUROSEMIDE
  4. TAMSULOSIN HYDROCHLORIDE [Concomitant]
     Active Substance: TAMSULOSIN HYDROCHLORIDE
  5. REBAMIPIDE [Concomitant]
     Active Substance: REBAMIPIDE
  6. CILNIDIPINE [Concomitant]
     Active Substance: CILNIDIPINE
  7. CARVEDILOL [Concomitant]
     Active Substance: CARVEDILOL
  8. METHYLDOPA [Concomitant]
     Active Substance: METHYLDOPA
  9. TELMISARTAN [Concomitant]
     Active Substance: TELMISARTAN

REACTIONS (5)
  - Drug ineffective [Unknown]
  - Toxic encephalopathy [None]
  - Altered state of consciousness [None]
  - Generalised tonic-clonic seizure [None]
  - Hepatic function abnormal [None]
